FAERS Safety Report 11661290 (Version 1)
Quarter: 2015Q4

REPORT INFORMATION
  Report Type: Report from Study
  Country: US (occurrence: US)
  Receive Date: 20151026
  Receipt Date: 20151026
  Transmission Date: 20160304
  Serious: Yes (Hospitalization)
  Sender: FDA-Public Use
  Company Number: PHHO2015US018034

PATIENT
  Age: 63 Year
  Sex: Female
  Weight: 76.2 kg

DRUGS (5)
  1. COUMADIN [Suspect]
     Active Substance: WARFARIN SODIUM
     Indication: MITRAL VALVE REPLACEMENT
     Dosage: UNK
     Route: 065
  2. BLINDED PLACEBO [Suspect]
     Active Substance: INVESTIGATIONAL PRODUCT
     Indication: RENAL CELL CARCINOMA
     Dosage: CODE NOT BROKEN
     Route: 048
     Dates: start: 20140212, end: 20150406
  3. AFINITOR [Suspect]
     Active Substance: EVEROLIMUS
     Indication: RENAL CELL CARCINOMA
     Dosage: CODE NOT BROKEN
     Route: 048
     Dates: start: 20140212, end: 20150406
  4. ACETYLSALICYLIC ACID [Suspect]
     Active Substance: ASPIRIN
  5. BLINDED NO TREATMENT RECEIVED [Suspect]
     Active Substance: INVESTIGATIONAL PRODUCT
     Indication: RENAL CELL CARCINOMA
     Dosage: CODE NOT BROKEN
     Route: 048
     Dates: start: 20140212, end: 20150406

REACTIONS (3)
  - Coagulopathy [Recovered/Resolved]
  - Haemorrhage intracranial [Recovered/Resolved]
  - Anaemia [Recovered/Resolved]

NARRATIVE: CASE EVENT DATE: 20140407
